FAERS Safety Report 18131120 (Version 8)
Quarter: 2021Q2

REPORT INFORMATION
  Report Type: Report from Study
  Country: US (occurrence: US)
  Receive Date: 20200810
  Receipt Date: 20210428
  Transmission Date: 20210717
  Serious: Yes (Hospitalization, Other)
  Sender: FDA-Public Use
  Company Number: US-TAKEDA-2020TUS033885

PATIENT
  Age: 74 Year
  Sex: Female
  Weight: 65.4 kg

DRUGS (22)
  1. MULTIVITAMINS [Concomitant]
     Active Substance: VITAMINS
     Dosage: UNK
     Route: 048
     Dates: start: 20130829
  2. XALATAN [Concomitant]
     Active Substance: LATANOPROST
     Indication: GLAUCOMA
     Dosage: 0.005 PERCENT
     Route: 047
     Dates: start: 20140219
  3. DECADRON [Suspect]
     Active Substance: DEXAMETHASONE
     Dosage: 12 MILLIGRAM, 1/WEEK
     Route: 042
     Dates: start: 20200521, end: 20200806
  4. GLUCOSAMINE [Concomitant]
     Active Substance: GLUCOSAMINE
     Indication: ARTHRALGIA
     Dosage: 1500 MILLIGRAM
     Route: 048
     Dates: start: 20130829
  5. ZOLOFT [Concomitant]
     Active Substance: SERTRALINE HYDROCHLORIDE
     Indication: DEPRESSION
     Dosage: 50 MILLIGRAM
     Route: 048
     Dates: start: 20140813
  6. POMALYST [Suspect]
     Active Substance: POMALIDOMIDE
     Indication: PLASMA CELL MYELOMA
     Dosage: 4 MILLIGRAM
     Route: 048
     Dates: start: 20190903, end: 20200204
  7. FISH OIL [Concomitant]
     Active Substance: FISH OIL
     Indication: PRODUCT USED FOR UNKNOWN INDICATION
     Dosage: 1000 MILLIGRAM
     Route: 048
     Dates: start: 20140219
  8. DARZALEX [Suspect]
     Active Substance: DARATUMUMAB
     Indication: PLASMA CELL MYELOMA
     Dosage: 16 MILLIGRAM/KILOGRAM, Q2WEEKS
     Route: 042
     Dates: start: 20190820, end: 20191223
  9. DARZALEX [Suspect]
     Active Substance: DARATUMUMAB
     Dosage: 16 MILLIGRAM, 1/WEEK
     Route: 042
     Dates: start: 20200521, end: 20200806
  10. POMALYST [Suspect]
     Active Substance: POMALIDOMIDE
     Dosage: 2 MILLIGRAM
     Route: 048
     Dates: start: 20200508, end: 20200806
  11. VITAMIN D                          /00107901/ [Concomitant]
     Active Substance: ERGOCALCIFEROL
     Indication: BLOOD CALCIUM
     Dosage: UNK
     Route: 048
     Dates: start: 20130829
  12. BUPROPION. [Concomitant]
     Active Substance: BUPROPION
     Indication: TOBACCO ABUSE
     Dosage: 150 MILLIGRAM
     Route: 048
     Dates: start: 20140219
  13. FOLIC ACID. [Concomitant]
     Active Substance: FOLIC ACID
     Indication: PRODUCT USED FOR UNKNOWN INDICATION
     Dosage: 3 MILLIGRAM
     Route: 048
     Dates: start: 20130829
  14. COMPAZINE                          /00013302/ [Concomitant]
     Active Substance: PROCHLORPERAZINE EDISYLATE
     Indication: NAUSEA
     Dosage: 10 MILLIGRAM
     Route: 048
     Dates: start: 20190108
  15. ZOVIRAX [Concomitant]
     Active Substance: ACYCLOVIR
     Indication: HERPES VIRUS INFECTION
     Dosage: 400 MILLIGRAM
     Route: 048
     Dates: start: 20190115
  16. REVLIMID [Suspect]
     Active Substance: LENALIDOMIDE
     Indication: PLASMA CELL MYELOMA
     Dosage: 25 MILLIGRAM
     Route: 048
     Dates: start: 20190129, end: 20190319
  17. BORTEZOMIB. [Suspect]
     Active Substance: BORTEZOMIB
     Indication: PLASMA CELL MYELOMA
     Dosage: 2.25 MILLIGRAM
     Route: 058
     Dates: start: 20190115
  18. DECADRON [Suspect]
     Active Substance: DEXAMETHASONE
     Indication: PLASMA CELL MYELOMA
     Dosage: 4 MILLIGRAM, 1/WEEK
     Route: 048
     Dates: start: 20200511, end: 20200521
  19. XGEVA [Concomitant]
     Active Substance: DENOSUMAB
     Indication: BONE DISORDER
     Dosage: 120 MILLIGRAM
     Route: 058
     Dates: start: 20190122, end: 20200730
  20. VITAMIN D3 [Concomitant]
     Active Substance: CHOLECALCIFEROL
     Indication: BLOOD CALCIUM
     Dosage: UNK
     Route: 048
     Dates: start: 20140219
  21. ASPIRIN                            /00002701/ [Concomitant]
     Active Substance: ASPIRIN
     Indication: THROMBOSIS PROPHYLAXIS
     Dosage: 81 MILLIGRAM
     Route: 048
     Dates: start: 20190108
  22. ACETAMINOPHEN. [Concomitant]
     Active Substance: ACETAMINOPHEN
     Indication: ANALGESIC THERAPY
     Dosage: 650 MILLIGRAM
     Route: 048
     Dates: start: 20160607, end: 20200807

REACTIONS (1)
  - Small cell lung cancer [Recovering/Resolving]

NARRATIVE: CASE EVENT DATE: 20200806
